FAERS Safety Report 7638833-0 (Version None)
Quarter: 2011Q3

REPORT INFORMATION
  Report Type: 
  Country: None (occurrence: None)
  Receive Date: 20110726
  Receipt Date: 20110726
  Transmission Date: 20111222
  Serious: No
  Sender: FDA-Public Use
  Company Number: None

PATIENT
  Sex: Female
  Weight: 85 kg

DRUGS (2)
  1. TAXOL [Suspect]
     Dosage: 336 MG
  2. CARBOPLATIN [Suspect]
     Dosage: 900 MG

REACTIONS (1)
  - NEUTROPENIA [None]
